FAERS Safety Report 8879755 (Version 8)
Quarter: 2014Q2

REPORT INFORMATION
  Report Type: Spontaneous
  Country: US (occurrence: US)
  Receive Date: 20121031
  Receipt Date: 20140616
  Transmission Date: 20141212
  Serious: Yes (Hospitalization, Other)
  Sender: FDA-Public Use
  Company Number: US-009507513-1210USA010514

PATIENT
  Sex: Female
  Weight: 63.49 kg

DRUGS (4)
  1. FOSAMAX [Suspect]
     Indication: OSTEOPOROSIS
     Dosage: 70 MG, UNK
     Route: 048
     Dates: start: 20060919, end: 20080308
  2. FOSAMAX [Suspect]
     Dosage: UNK
     Route: 048
     Dates: start: 200609, end: 201109
  3. ALENDRONATE SODIUM [Suspect]
     Indication: OSTEOPOROSIS
     Dosage: 70 MG, UNK
     Route: 048
     Dates: start: 20110201, end: 20110927
  4. ALENDRONATE SODIUM [Suspect]
     Dosage: 70 MG, UNK
     Route: 048
     Dates: start: 20080312, end: 20090508

REACTIONS (15)
  - Femur fracture [Recovered/Resolved]
  - Open reduction of fracture [Unknown]
  - Osteoarthritis [Unknown]
  - Knee arthroplasty [Unknown]
  - Low turnover osteopathy [Unknown]
  - Cellulitis [Unknown]
  - Ligament sprain [Unknown]
  - Ecchymosis [Unknown]
  - Electrocardiogram QRS complex prolonged [Unknown]
  - Ligament sprain [Unknown]
  - Fall [Unknown]
  - Muscle strain [Recovering/Resolving]
  - Stasis dermatitis [Unknown]
  - Muscle spasms [Unknown]
  - Diarrhoea [Unknown]
